FAERS Safety Report 16168073 (Version 2)
Quarter: 2019Q2

REPORT INFORMATION
  Report Type: Spontaneous
  Country: US (occurrence: US)
  Receive Date: 20190408
  Receipt Date: 20190613
  Transmission Date: 20190711
  Serious: No
  Sender: FDA-Public Use
  Company Number: US-PFIZER INC-2019143006

PATIENT
  Age: 78 Year
  Sex: Female

DRUGS (1)
  1. REVATIO [Suspect]
     Active Substance: SILDENAFIL CITRATE
     Indication: DYSPNOEA
     Dosage: 20 MG, 3X/DAY

REACTIONS (5)
  - Product use in unapproved indication [Unknown]
  - Hypoacusis [Unknown]
  - Cognitive disorder [Unknown]
  - Off label use [Unknown]
  - Dyspnoea [Recovering/Resolving]
